FAERS Safety Report 12270843 (Version 2)
Quarter: 2016Q4

REPORT INFORMATION
  Report Type: Spontaneous
  Country: US (occurrence: US)
  Receive Date: 20160415
  Receipt Date: 20161011
  Transmission Date: 20170207
  Serious: No
  Sender: FDA-Public Use
  Company Number: US-TEVA-636464USA

PATIENT
  Sex: Female

DRUGS (1)
  1. ZECUITY [Suspect]
     Active Substance: SUMATRIPTAN SUCCINATE
     Indication: HEADACHE
     Dosage: 6.5 MG/4 HOURS
     Route: 062

REACTIONS (4)
  - Drug effect incomplete [Unknown]
  - Device adhesion issue [Unknown]
  - Device battery issue [Unknown]
  - Device leakage [Unknown]

NARRATIVE: CASE EVENT DATE: 201602
